FAERS Safety Report 8416307-7 (Version None)
Quarter: 2012Q2

REPORT INFORMATION
  Report Type: 
  Country: None (occurrence: None)
  Receive Date: 20120323
  Receipt Date: 20111019
  Transmission Date: 20120825
  Serious: Yes (Hospitalization, Other)
  Sender: FDA-Public Use
  Company Number: 163-21880-11073367

PATIENT
  Age: 82 Year
  Sex: Male
  Weight: 79.8331 kg

DRUGS (19)
  1. AMBIEN [Concomitant]
  2. ALLOPURINOL [Concomitant]
  3. DILTIAZEM [Concomitant]
  4. ACETAMINOPHEN [Concomitant]
  5. BENADRYL [Concomitant]
  6. ISOSORBIDE (ISOSORBIDE) [Concomitant]
  7. COLACE (DOCUSATE SODIUM) [Concomitant]
  8. LASIX [Concomitant]
  9. KEFLEX [Concomitant]
  10. AREDIA [Concomitant]
  11. REVLIMID [Suspect]
     Indication: MULTIPLE MYELOMA
     Dosage: 10 MG, 3 WEEKS ON ONE WEEK OFF, PO
     Route: 048
     Dates: start: 20110526
  12. DEXAMETHASONE [Concomitant]
  13. COUMADIN [Concomitant]
  14. ASPIRIN [Concomitant]
  15. ALTACE [Concomitant]
  16. HYDROCHLOROTHIAZIDE [Concomitant]
  17. RYTHMOL [Concomitant]
  18. DECADRON [Concomitant]
  19. TRANSFUSION (BLOOD TRANSFUSION, AUXILIARY PRODUCTS) [Concomitant]

REACTIONS (4)
  - ATRIAL FIBRILLATION [None]
  - BLOOD PRESSURE INCREASED [None]
  - RASH GENERALISED [None]
  - RASH PRURITIC [None]
